FAERS Safety Report 13490926 (Version 1)
Quarter: 2017Q2

REPORT INFORMATION
  Report Type: Spontaneous
  Country: BR (occurrence: BR)
  Receive Date: 20170427
  Receipt Date: 20170427
  Transmission Date: 20170830
  Serious: Yes (Other)
  Sender: FDA-Public Use
  Company Number: BR-009507513-1704BRA013710

PATIENT
  Age: 30 Year
  Sex: Female
  Weight: 102 kg

DRUGS (8)
  1. NUVARING [Suspect]
     Active Substance: ETHINYL ESTRADIOL\ETONOGESTREL
     Dosage: UNK
     Route: 067
     Dates: end: 20170419
  2. ULTRAFER [Concomitant]
     Indication: HYPOVITAMINOSIS
     Dosage: 2 TABLETS A DAY
     Route: 048
  3. CENTRUM (MINERALS (UNSPECIFIED) (+) VITAMINS (UNSPECIFIED)) [Concomitant]
     Indication: HYPOVITAMINOSIS
     Dosage: 1 CAPSULE A DAY
     Route: 048
  4. CYANOCOBALAMIN. [Concomitant]
     Active Substance: CYANOCOBALAMIN
     Indication: HYPOVITAMINOSIS
     Dosage: 2 TABLETS A DAY
     Route: 060
  5. NUVARING [Suspect]
     Active Substance: ETHINYL ESTRADIOL\ETONOGESTREL
     Indication: CONTRACEPTION
     Dosage: ONE VAGINAL RING FOR 3 WEEKS AND 1 WEEK FOR FREE CONTRACEPTIVE INTERVAL
     Route: 067
     Dates: start: 200705
  6. NUVARING [Suspect]
     Active Substance: ETHINYL ESTRADIOL\ETONOGESTREL
     Dosage: ONE VAGINAL RING FOR 3 WEEKS AND 1 WEEK FOR FREE CONTRACEPTIVE INTERVAL
     Route: 067
  7. OMEGA-3 ACIDS [Concomitant]
     Active Substance: OMEGA-3 FATTY ACIDS
     Indication: HYPOVITAMINOSIS
     Dosage: 2 CAPSULES A DAY
     Route: 048
  8. CALCITRAN D3 [Concomitant]
     Indication: HYPOVITAMINOSIS
     Dosage: 2 TABLETS A DAY
     Route: 048

REACTIONS (8)
  - Autoimmune thyroiditis [Not Recovered/Not Resolved]
  - Thyroid mass [Not Recovered/Not Resolved]
  - Weight increased [Not Recovered/Not Resolved]
  - Incorrect drug administration duration [Unknown]
  - Eye pain [Unknown]
  - Optic neuritis [Not Recovered/Not Resolved]
  - Irritability [Not Recovered/Not Resolved]
  - Mood altered [Not Recovered/Not Resolved]

NARRATIVE: CASE EVENT DATE: 200805
